FAERS Safety Report 12279851 (Version 1)
Quarter: 2016Q2

REPORT INFORMATION
  Report Type: Spontaneous
  Country: CN (occurrence: CN)
  Receive Date: 20160418
  Receipt Date: 20160418
  Transmission Date: 20160815
  Serious: Yes (Other)
  Sender: FDA-Public Use
  Company Number: CN-ABBVIE-16P-035-1608066-00

PATIENT
  Age: 70 Year
  Sex: Female

DRUGS (1)
  1. DEPAKINE CHRONO [Suspect]
     Active Substance: VALPROATE SODIUM
     Indication: MOOD SWINGS
     Route: 048
     Dates: start: 20151007, end: 20151021

REACTIONS (1)
  - Electrocardiogram QT interval abnormal [Recovering/Resolving]

NARRATIVE: CASE EVENT DATE: 20151013
